FAERS Safety Report 6928906-X (Version None)
Quarter: 2010Q3

REPORT INFORMATION
  Report Type: 
  Country: None (occurrence: None)
  Receive Date: 20100817
  Receipt Date: 20100809
  Transmission Date: 20110219
  Serious: Yes (Other)
  Sender: FDA-Public Use
  Company Number: US-AMGEN-QUU408146

PATIENT
  Sex: Male
  Weight: 132.1 kg

DRUGS (1)
  1. NPLATE [Suspect]
     Indication: IDIOPATHIC THROMBOCYTOPENIC PURPURA
     Route: 058
     Dates: start: 20090416, end: 20090618

REACTIONS (8)
  - ANAEMIA MACROCYTIC [None]
  - CONTUSION [None]
  - DRUG INEFFECTIVE [None]
  - EPISTAXIS [None]
  - OSTEONECROSIS [None]
  - THERAPEUTIC RESPONSE DECREASED [None]
  - VITAMIN D DEFICIENCY [None]
  - WEIGHT DECREASED [None]
